FAERS Safety Report 8696570 (Version 2)
Quarter: 2013Q4

REPORT INFORMATION
  Report Type: Report from Study
  Country: US (occurrence: US)
  Receive Date: 20120801
  Receipt Date: 20131105
  Transmission Date: 20140711
  Serious: Yes (Other)
  Sender: FDA-Public Use
  Company Number: US-009507513-2011SP049968

PATIENT
  Sex: Female

DRUGS (3)
  1. PEG-INTRON [Suspect]
     Indication: HEPATITIS C
     Dosage: UNK UNK, UNKNOWN
     Route: 065
     Dates: start: 20110705, end: 201112
  2. INVESTIGATIONAL DRUG (UNSPECIFIED) [Suspect]
     Indication: HEPATITIS C
     Dosage: UNK UNK, UNKNOWN
     Route: 065
     Dates: start: 20110705, end: 20110929
  3. MK-8908 [Suspect]
     Indication: HEPATITIS C
     Dosage: UNK UNK, UNKNOWN
     Route: 065
     Dates: start: 20110705, end: 201112

REACTIONS (9)
  - Haemolytic anaemia [Unknown]
  - Insomnia [Unknown]
  - Pruritus [Unknown]
  - Nausea [Unknown]
  - Asthenia [Unknown]
  - Weight decreased [Unknown]
  - Malaise [Unknown]
  - Paraesthesia [Unknown]
  - Anaemia [Unknown]
